FAERS Safety Report 19787186 (Version 1)
Quarter: 2021Q3

REPORT INFORMATION
  Report Type: Spontaneous
  Country: US (occurrence: US)
  Receive Date: 20210903
  Receipt Date: 20210903
  Transmission Date: 20211014
  Serious: Yes (Hospitalization)
  Sender: FDA-Public Use
  Company Number: US-INCYTE CORPORATION-2021IN007842

PATIENT

DRUGS (2)
  1. JAKAFI [Suspect]
     Active Substance: RUXOLITINIB
     Indication: ACUTE MYELOID LEUKAEMIA
     Dosage: 5 MILLIGRAM, BID
     Route: 048
     Dates: start: 201911
  2. JAKAFI [Suspect]
     Active Substance: RUXOLITINIB
     Dosage: INCREASED DOSE
     Route: 065
     Dates: start: 202107

REACTIONS (2)
  - Off label use [Unknown]
  - Body temperature increased [Recovered/Resolved]

NARRATIVE: CASE EVENT DATE: 20210717
